FAERS Safety Report 7503815-6 (Version None)
Quarter: 2011Q2

REPORT INFORMATION
  Report Type: 
  Country: None (occurrence: None)
  Receive Date: 20110525
  Receipt Date: 20110519
  Transmission Date: 20111010
  Serious: Yes (Hospitalization)
  Sender: FDA-Public Use
  Company Number: JP-TYCO HEALTHCARE/MALLINCKRODT-T201101071

PATIENT
  Sex: Female

DRUGS (1)
  1. METHADONE HCL [Suspect]
     Indication: CANCER PAIN
     Dosage: 5 MG, TID
     Route: 048
     Dates: start: 20110420, end: 20110517

REACTIONS (1)
  - DISEASE PROGRESSION [None]
